FAERS Safety Report 4442688-5 (Version None)
Quarter: 2004Q3

REPORT INFORMATION
  Report Type: 
  Country: None (occurrence: None)
  Receive Date: 20040903
  Receipt Date: 20040622
  Transmission Date: 20050211
  Serious: Yes (Other)
  Sender: FDA-Public Use
  Company Number: 2004UW12969

PATIENT
  Age: 49 Year
  Sex: Male

DRUGS (3)
  1. CRESTOR [Suspect]
     Indication: MULTIPLE SCLEROSIS
     Dosage: 10 MG DAILY PO
     Route: 048
  2. NEURONTIN [Concomitant]
  3. COPAXONE [Concomitant]

REACTIONS (1)
  - LOCAL SWELLING [None]
